FAERS Safety Report 24062463 (Version 1)
Quarter: 2024Q3

REPORT INFORMATION
  Report Type: Spontaneous
  Country: ES (occurrence: ES)
  Receive Date: 20240708
  Receipt Date: 20240708
  Transmission Date: 20241016
  Serious: Yes (Other)
  Sender: NOVARTIS
  Company Number: None

PATIENT
  Age: 14 Year
  Sex: Female

DRUGS (1)
  1. KYMRIAH [Suspect]
     Active Substance: TISAGENLECLEUCEL
     Indication: Ewing^s sarcoma metastatic
     Dosage: UNK UNK, ONCE/SINGLE (1,2 X 10E6 - 6,0 X 10E8 CELULAS DISPERSION PARA PERFUSION 1-3 BOLSAS DE PERFUS
     Route: 042
     Dates: start: 20240529, end: 20240529

REACTIONS (2)
  - Clostridium difficile infection [Recovered/Resolved]
  - Cytokine release syndrome [Recovered/Resolved]

NARRATIVE: CASE EVENT DATE: 20240602
